FAERS Safety Report 10056330 (Version 1)
Quarter: 2014Q2

REPORT INFORMATION
  Report Type: Spontaneous
  Country: US (occurrence: None)
  Receive Date: 20140401
  Receipt Date: 20140401
  Transmission Date: 20141212
  Serious: Yes (Death, Life-Threatening, Hospitalization, Other)
  Sender: FDA-Public Use
  Company Number: AXC-2014-000216

PATIENT
  Age: 53 Year
  Sex: Male

DRUGS (21)
  1. PROPRANOLOL HYDROCHLORIDE [Suspect]
     Indication: PRODUCT USED FOR UNKNOWN INDICATION
  2. DILTIAZEM [Suspect]
     Indication: PRODUCT USED FOR UNKNOWN INDICATION
  3. WARFARIN (WARFARIN) [Concomitant]
  4. LORAZEPAM (LORAZEPAM) [Concomitant]
  5. OLMESARTAN (OLMESARTAN) [Concomitant]
  6. FLUOXETINE (FLUOXETINE) [Concomitant]
  7. EPINEPHRINE (EPINEPHRINE) [Concomitant]
  8. EPINEPHRINE (EPINEPHRINE) [Concomitant]
  9. ATROPINE (ATROPINE) [Concomitant]
  10. ATROPINE (ATROPINE) [Concomitant]
  11. CACLIUM CHLORIDE (CALCIUM CHLORIDE) [Concomitant]
  12. DOPAMINE (DOPAMINE)INFUSION [Concomitant]
  13. SODIUM BICARBONATE (SODIUM CARBONATE ) [Concomitant]
  14. SODIUM BICARBONATE (SODIUM CARBONATE ) [Concomitant]
  15. INSULIN (INSULIN) [Concomitant]
  16. INSULIN (INSULIN) [Concomitant]
  17. DEXTROSE (GLUCOSE) [Concomitant]
  18. NOREPINEPHRINE (NOREPINPEHRINE) [Concomitant]
  19. PHENYLPHRINE (PHENYLPHRINE) [Concomitant]
  20. DOBUTAMINE [Concomitant]
  21. VASPRESSIN (VASPORESSIN) [Concomitant]

REACTIONS (13)
  - Intentional overdose [None]
  - Bradycardia [None]
  - Myocardial ischaemia [None]
  - Cardiac failure [None]
  - Respiratory failure [None]
  - Atrioventricular block complete [None]
  - Hypotension [None]
  - Multi-organ failure [None]
  - Coronary artery stenosis [None]
  - Hypoperfusion [None]
  - Drug interaction [None]
  - Electrocardiogram QRS complex shortened [None]
  - Therapy cessation [None]
